FAERS Safety Report 8246457-X (Version None)
Quarter: 2012Q1

REPORT INFORMATION
  Report Type: 
  Country: None (occurrence: None)
  Receive Date: 20120316
  Receipt Date: 20110818
  Transmission Date: 20120608
  Serious: No
  Sender: FDA-Public Use
  Company Number: PHEH2011US01949

PATIENT
  Age: 61 Year
  Sex: Female

DRUGS (1)
  1. ILARIS [Suspect]
     Indication: RHEUMATOID ARTHRITIS
     Dosage: 150 MG, EVERY 8 WEEKS, SUBCUTANEOUS
     Route: 058
     Dates: start: 20110203, end: 20110818

REACTIONS (2)
  - ARTHRALGIA [None]
  - SWELLING [None]
